FAERS Safety Report 7563628-6 (Version None)
Quarter: 2011Q2

REPORT INFORMATION
  Report Type: 
  Country: None (occurrence: None)
  Receive Date: 20110622
  Receipt Date: 20110613
  Transmission Date: 20111010
  Serious: Yes (Hospitalization)
  Sender: FDA-Public Use
  Company Number: RU-BRISTOL-MYERS SQUIBB COMPANY-14679492

PATIENT
  Age: 72 Year
  Sex: Male

DRUGS (8)
  1. BISOPROLOL [Concomitant]
     Dates: start: 20080415
  2. PERINDOPRIL ERBUMINE [Concomitant]
     Dates: start: 20080523
  3. WARFARIN SODIUM [Suspect]
     Indication: THROMBOSIS PROPHYLAXIS
     Dosage: INTERRUPTED ON 29MAY09,RESTARTED ON 12AUG09 WITH 1 MG
     Route: 048
     Dates: start: 20080522
  4. PLACEBO [Suspect]
     Indication: THROMBOSIS PROPHYLAXIS
     Dosage: INTERRUPTED ON 29MAY09,RESTARTED ON 12AUG09
     Route: 048
     Dates: start: 20080522
  5. ISOSORBIDE DINITRATE [Concomitant]
     Dates: start: 20080415
  6. DIGOXIN [Concomitant]
     Dates: start: 20080415
  7. GLYBURIDE [Concomitant]
     Dates: start: 20080415
  8. METFORMIN HCL [Concomitant]
     Dates: start: 20080415

REACTIONS (2)
  - GASTRIC POLYPS [None]
  - GASTROINTESTINAL HAEMORRHAGE [None]
